FAERS Safety Report 10924529 (Version 1)
Quarter: 2015Q1

REPORT INFORMATION
  Report Type: Spontaneous
  Country: US (occurrence: None)
  Receive Date: 20150202
  Receipt Date: 20150202
  Transmission Date: 20150721
  Serious: Yes (Hospitalization, Other)
  Sender: FDA-Public Use
  Company Number: TPA2011A01637

PATIENT
  Age: 55 Year
  Sex: Female
  Weight: 104.33 kg

DRUGS (7)
  1. SIMVASTATN (SIMVASTATIN) [Concomitant]
  2. DEXILANT [Suspect]
     Active Substance: DEXLANSOPRAZOLE
     Indication: GASTROOESOPHAGEAL REFLUX DISEASE
     Route: 048
     Dates: start: 20110318, end: 20110324
  3. METFORMIN [Concomitant]
     Active Substance: METFORMIN HYDROCHLORIDE
  4. PREVACID [Concomitant]
     Active Substance: LANSOPRAZOLE
  5. SYNTHROID [Concomitant]
     Active Substance: LEVOTHYROXINE SODIUM
  6. TUMS [Concomitant]
     Active Substance: CALCIUM CARBONATE
  7. VITAMIN D (ERGOCALCIFEROL) [Concomitant]
     Active Substance: ERGOCALCIFEROL

REACTIONS (10)
  - Eye swelling [None]
  - Cough [None]
  - Swelling face [None]
  - Chest pain [None]
  - Oropharyngeal swelling [None]
  - Asthma [None]
  - Hypersensitivity [None]
  - Pruritus [None]
  - Wheezing [None]
  - Dizziness [None]

NARRATIVE: CASE EVENT DATE: 2011
